FAERS Safety Report 7494086-8 (Version None)
Quarter: 2011Q2

REPORT INFORMATION
  Report Type: 
  Country: None (occurrence: None)
  Receive Date: 20110520
  Receipt Date: 20110509
  Transmission Date: 20111010
  Serious: Yes (Hospitalization, Other)
  Sender: FDA-Public Use
  Company Number: US-ALEXION-A201100641

PATIENT
  Sex: Female

DRUGS (10)
  1. HUMULIN R [Concomitant]
     Indication: DIABETES MELLITUS
     Dosage: 4-5 UNITS PRN
     Route: 058
  2. LASIX [Concomitant]
     Dosage: 1/2 - 1 TAB 20 MG, QD
     Route: 048
  3. FOLIC ACID [Concomitant]
     Dosage: 1 MG, QD
     Route: 048
  4. SOLIRIS [Suspect]
     Indication: PAROXYSMAL NOCTURNAL HAEMOGLOBINURIA
     Dosage: UNK
     Route: 042
  5. VASOTEC [Concomitant]
     Dosage: 5 MG, QD
     Route: 048
  6. COREG [Concomitant]
     Dosage: 12.5 MG, QD
     Route: 048
  7. DRISDOL [Concomitant]
     Dosage: 50000 IU, UNK
     Route: 048
  8. CALCIUM CARBONATE [Concomitant]
     Dosage: 2 TABS BID
     Route: 048
  9. MONODOX [Concomitant]
     Indication: ROSACEA
     Dosage: 50 MG, PRN
     Route: 048
  10. LOVENOX [Concomitant]
     Dosage: 53 MG, BID
     Route: 058

REACTIONS (8)
  - CLOSTRIDIUM DIFFICILE COLITIS [None]
  - CONFUSIONAL STATE [None]
  - PNEUMONIA [None]
  - NAUSEA [None]
  - VOMITING [None]
  - URINARY TRACT INFECTION [None]
  - ATRIAL FIBRILLATION [None]
  - HAEMOGLOBINURIA [None]
